FAERS Safety Report 24167925 (Version 1)
Quarter: 2024Q3

REPORT INFORMATION
  Report Type: Spontaneous
  Country: JP (occurrence: JP)
  Receive Date: 20240802
  Receipt Date: 20240802
  Transmission Date: 20241017
  Serious: Yes (Other)
  Sender: BIOVITRUM
  Company Number: JP-BIOVITRUM-2023-JP-014412

PATIENT
  Age: 75 Year
  Sex: Male
  Weight: 95 kg

DRUGS (13)
  1. DOPTELET [Suspect]
     Active Substance: AVATROMBOPAG MALEATE
     Indication: Hepatic cirrhosis
     Dosage: 20 MG FIVE TIMES/DAY
     Route: 048
     Dates: start: 20230814, end: 20230818
  2. DOPTELET [Suspect]
     Active Substance: AVATROMBOPAG MALEATE
     Dosage: ONCE/DAY
     Route: 048
     Dates: start: 20230807, end: 20230812
  3. EDOXABAN TOSYLATE [Concomitant]
     Active Substance: EDOXABAN TOSYLATE
     Indication: Portal vein thrombosis
     Dosage: ONCE/DAY
     Route: 048
     Dates: end: 20230824
  4. MIGLITOL [Concomitant]
     Active Substance: MIGLITOL
     Indication: Diabetes mellitus
     Dosage: TWICE/DAY
     Route: 048
  5. ENTECAVIR [Concomitant]
     Active Substance: ENTECAVIR
     Indication: Hepatic cirrhosis
     Dosage: ONCE/DAY
     Route: 048
  6. VONOPRAZAN FUMARATE [Concomitant]
     Active Substance: VONOPRAZAN FUMARATE
     Indication: Varices oesophageal
     Dosage: ONCE/DAY
     Route: 048
  7. OLMESARTAN [Concomitant]
     Active Substance: OLMESARTAN
     Indication: Varices oesophageal
     Dosage: ONCE/DAY
     Route: 048
  8. POLAPREZINC [Concomitant]
     Active Substance: POLAPREZINC
     Indication: Varices oesophageal
     Dosage: TWICE/DAY
     Route: 048
  9. HEPAACT [Concomitant]
     Indication: Hepatic cirrhosis
     Dosage: THREE TIMES/DAY
     Route: 048
  10. HISHIPHAGEN [Concomitant]
     Indication: Hepatic cirrhosis
     Dosage: ONCE/DAY
     Route: 042
     Dates: start: 20230825, end: 20230829
  11. MENATETRENONE [Concomitant]
     Active Substance: MENATETRENONE
     Indication: Hepatic cirrhosis
     Dosage: ONCE/DAY
     Route: 041
     Dates: start: 20230825, end: 20230829
  12. CEFAZOLIN [Concomitant]
     Active Substance: CEFAZOLIN
     Indication: Postoperative wound infection
     Dosage: TWICE/DAY
     Route: 041
     Dates: start: 20230827, end: 20230829
  13. FESIN [Concomitant]
     Indication: Anaemia
     Dosage: THREE TIMES/DAY
     Route: 042
     Dates: start: 20230827, end: 20230829

REACTIONS (2)
  - Intra-abdominal haemorrhage [Recovered/Resolved]
  - Ascites [Recovered/Resolved]

NARRATIVE: CASE EVENT DATE: 20230825
